FAERS Safety Report 24846077 (Version 1)
Quarter: 2025Q1

REPORT INFORMATION
  Report Type: Spontaneous
  Country: US (occurrence: US)
  Receive Date: 20250115
  Receipt Date: 20250115
  Transmission Date: 20250409
  Serious: No
  Sender: BIOGEN
  Company Number: US-BIOGEN-2024BI01285957

PATIENT
  Sex: Female

DRUGS (21)
  1. AVONEX [Suspect]
     Active Substance: INTERFERON BETA-1A
     Indication: Multiple sclerosis
     Dosage: INJECT 30 MCG (1 INJECTOR) INTRAMUSCULARLY ONCE WEEKLY
     Route: 050
     Dates: start: 20231029
  2. AVONEX [Suspect]
     Active Substance: INTERFERON BETA-1A
  3. AVONEX [Suspect]
     Active Substance: INTERFERON BETA-1A
  4. AVONEX [Suspect]
     Active Substance: INTERFERON BETA-1A
  5. UBIQUINOL [Concomitant]
     Active Substance: UBIQUINOL
     Route: 050
  6. MENAQUINONE 6 [Concomitant]
     Active Substance: MENAQUINONE 6
     Route: 050
  7. HERBALS\TURMERIC [Concomitant]
     Active Substance: HERBALS\TURMERIC
     Route: 050
  8. VITAMIN D-1000 [Concomitant]
     Route: 050
  9. VITAMIN B6 [Concomitant]
     Active Substance: PYRIDOXINE HYDROCHLORIDE
     Route: 050
  10. OYSTER SHELL [Concomitant]
     Active Substance: OSTREA EDULIS SHELL
     Route: 050
  11. CALCIUM\MAGNESIUM [Concomitant]
     Active Substance: CALCIUM\MAGNESIUM
     Route: 050
  12. ALEVE [Concomitant]
     Active Substance: NAPROXEN SODIUM
     Route: 050
  13. VITAMIN C [Concomitant]
     Active Substance: ASCORBIC ACID
     Route: 050
  14. LEVOTHYROXINE SODIUM [Concomitant]
     Active Substance: LEVOTHYROXINE SODIUM
     Route: 050
  15. LISINOPRIL [Concomitant]
     Active Substance: LISINOPRIL
     Route: 050
  16. GINKGO [Concomitant]
     Active Substance: GINKGO
     Route: 050
  17. HERBALS [Concomitant]
     Active Substance: HERBALS
     Route: 050
  18. OMEGA 3 [Concomitant]
     Active Substance: CAPSAICIN
     Route: 050
  19. PROBIOTICS NOS [Concomitant]
     Active Substance: PROBIOTICS NOS
     Route: 050
  20. TYLENOL EXTRA STRENGTH [Concomitant]
     Active Substance: ACETAMINOPHEN
     Route: 050
  21. MAGNESIUM GLYCINATE [Concomitant]
     Active Substance: MAGNESIUM GLYCINATE
     Route: 050

REACTIONS (1)
  - Neuropathy peripheral [Unknown]
